FAERS Safety Report 7531303-X (Version None)
Quarter: 2011Q2

REPORT INFORMATION
  Report Type: 
  Country: None (occurrence: None)
  Receive Date: 20110531
  Receipt Date: 20110518
  Transmission Date: 20111010
  Serious: Yes (Death)
  Sender: FDA-Public Use
  Company Number: 100002119

PATIENT
  Age: 28 Year
  Sex: Male

DRUGS (8)
  1. MORPHINE [Suspect]
  2. AMPHETAMINE SULFATE [Suspect]
  3. MDMA (METHYLENEDIOXYMETHAMPHETAMINE) [Suspect]
  4. CODEINE SULFATE [Suspect]
  5. THC (CANNABIS STAIVA) [Suspect]
  6. CITALOPRAM HYDROBROMIDE [Suspect]
  7. 7-AMINOFLUNITRAZEPAM (FLUNITRAZEPAM) [Suspect]
  8. METHAMPHETAMINE HYDROCHLORIDE [Suspect]

REACTIONS (1)
  - TOXICITY TO VARIOUS AGENTS [None]
